FAERS Safety Report 19466875 (Version 3)
Quarter: 2021Q3

REPORT INFORMATION
  Report Type: Spontaneous
  Country: US (occurrence: US)
  Receive Date: 20210628
  Receipt Date: 20210920
  Transmission Date: 20211014
  Serious: Yes (Death, Other)
  Sender: FDA-Public Use
  Company Number: US-BEH-2021133258

PATIENT
  Age: 13 Year
  Sex: Male

DRUGS (1)
  1. HIZENTRA [Suspect]
     Active Substance: HUMAN IMMUNOGLOBULIN G
     Indication: TRANSIENT HYPOGAMMAGLOBULINAEMIA OF INFANCY
     Dosage: 3 GRAM, QW
     Route: 058
     Dates: start: 202003, end: 20210525

REACTIONS (2)
  - Renal failure [Fatal]
  - Staphylococcal sepsis [Fatal]

NARRATIVE: CASE EVENT DATE: 20210525
